FAERS Safety Report 17574672 (Version 2)
Quarter: 2020Q2

REPORT INFORMATION
  Report Type: Spontaneous
  Country: DE (occurrence: DE)
  Receive Date: 20200324
  Receipt Date: 20200401
  Transmission Date: 20200713
  Serious: Yes (Other)
  Sender: FDA-Public Use
  Company Number: DE-TEVA-2020-DE-1206524

PATIENT
  Age: 59 Year
  Sex: Male

DRUGS (13)
  1. FENTANYL TRANSDERMAL SYSTEM [Suspect]
     Active Substance: FENTANYL
     Route: 065
  2. ASS 100 [Concomitant]
     Active Substance: ASPIRIN
  3. DEKRISTOL 20000 I.E. [Concomitant]
     Active Substance: CHOLECALCIFEROL
  4. NOVALGIN [Concomitant]
  5. SIMVASTATIN. [Concomitant]
     Active Substance: SIMVASTATIN
  6. GABAPENTIN. [Concomitant]
     Active Substance: GABAPENTIN
  7. ISDN 60 RETARD [Concomitant]
  8. PANTOPRAZOL [Concomitant]
     Active Substance: PANTOPRAZOLE SODIUM
  9. ORTOTON [Concomitant]
  10. XARELTO [Concomitant]
     Active Substance: RIVAROXABAN
  11. HCT 25 [Concomitant]
     Active Substance: HYDROCHLOROTHIAZIDE
  12. ENALAPRIL [Concomitant]
     Active Substance: ENALAPRIL
  13. BISOPROLOL [Concomitant]
     Active Substance: BISOPROLOL

REACTIONS (4)
  - Pain [Unknown]
  - Product quality issue [Unknown]
  - Drug ineffective [Unknown]
  - Suicidal ideation [Unknown]

NARRATIVE: CASE EVENT DATE: 2019
